FAERS Safety Report 8913147 (Version 2)
Quarter: 2013Q1

REPORT INFORMATION
  Report Type: Spontaneous
  Country: US (occurrence: US)
  Receive Date: 20121116
  Receipt Date: 20130128
  Transmission Date: 20140127
  Serious: No
  Sender: FDA-Public Use
  Company Number: US-009507513-1211USA004301

PATIENT
  Sex: Female

DRUGS (2)
  1. PROVENTIL [Suspect]
     Indication: BRONCHOSPASM
     Dosage: 1ONE PUFF BEFORE PHYSICAL ACTIVITY
     Route: 055
  2. ORTHO TRI CYCLEN [Concomitant]

REACTIONS (3)
  - Dyspnoea [Recovered/Resolved]
  - Drug ineffective [Unknown]
  - Product quality issue [Unknown]
